FAERS Safety Report 10097407 (Version 1)
Quarter: 2014Q2

REPORT INFORMATION
  Report Type: Report from Study
  Country: IT (occurrence: IT)
  Receive Date: 20140423
  Receipt Date: 20140423
  Transmission Date: 20141212
  Serious: Yes (Other)
  Sender: FDA-Public Use
  Company Number: IT-BAXTER-2014BAX019515

PATIENT
  Age: 4 Year
  Sex: Male

DRUGS (3)
  1. ADVATE 250 IU POWDER AND SOLVENT FOR SOLUTION FOR INJECTION [Suspect]
     Indication: PRODUCT USED FOR UNKNOWN INDICATION
     Route: 042
  2. ADVATE 250 IU POWDER AND SOLVENT FOR SOLUTION FOR INJECTION [Suspect]
     Indication: IMMUNE TOLERANCE INDUCTION
     Dosage: IMMUNE TOLERANCE INDUCTION
     Route: 042
  3. ADVATE 250 IU POWDER AND SOLVENT FOR SOLUTION FOR INJECTION [Suspect]
     Indication: OFF LABEL USE

REACTIONS (2)
  - Drug ineffective [Not Recovered/Not Resolved]
  - Factor VIII inhibition [Not Recovered/Not Resolved]
